FAERS Safety Report 5878841-3 (Version None)
Quarter: 2008Q3

REPORT INFORMATION
  Report Type: 
  Country: None (occurrence: None)
  Receive Date: 20080912
  Receipt Date: 20080908
  Transmission Date: 20090109
  Serious: Yes (Life-Threatening, Other)
  Sender: FDA-Public Use
  Company Number: US-KINGPHARMUSA00001-K200801043

PATIENT

DRUGS (7)
  1. ALTACE [Suspect]
     Dosage: 10 MG, QD
  2. ADCAL-D3 [Concomitant]
     Dosage: 2 DF, QD
  3. ROSUVASTATIN [Concomitant]
     Dosage: 5 MG, QD
  4. BENDROFLUAZIDE [Concomitant]
     Dosage: 2.5 MG, QD
     Route: 048
  5. LIDOCAINE [Concomitant]
     Dosage: 1 DF, QD
  6. NITROFURANTOIN [Concomitant]
     Dosage: 50 MG, QID
  7. ALENDRONIC ACID [Concomitant]
     Dosage: 70 MG, QW

REACTIONS (3)
  - ANAPHYLACTIC SHOCK [None]
  - SWOLLEN TONGUE [None]
  - SYNCOPE [None]
